FAERS Safety Report 18356114 (Version 1)
Quarter: 2020Q4

REPORT INFORMATION
  Report Type: Spontaneous
  Country: IT (occurrence: IT)
  Receive Date: 20201007
  Receipt Date: 20201007
  Transmission Date: 20210114
  Serious: Yes (Other)
  Sender: FDA-Public Use
  Company Number: IT-SAMSUNG BIOEPIS-SB-2020-30335

PATIENT
  Age: 66 Year
  Sex: Female
  Weight: 64 kg

DRUGS (2)
  1. REUMAFLEX [Concomitant]
     Indication: PRODUCT USED FOR UNKNOWN INDICATION
     Dosage: UNKNOWN, 50 MG / ML SOLUTION FOR INJECTION, PRE-FILLED SYRINGE
     Route: 058
  2. BENEPALI [Suspect]
     Active Substance: ETANERCEPT
     Indication: PSORIATIC ARTHROPATHY
     Dosage: UNKNOWN
     Route: 058
     Dates: start: 20200214, end: 20200825

REACTIONS (3)
  - Therapeutic product ineffective [Unknown]
  - Polyarthritis [Unknown]
  - Rheumatoid arthritis [Unknown]

NARRATIVE: CASE EVENT DATE: 20200828
